FAERS Safety Report 21832511 (Version 1)
Quarter: 2023Q1

REPORT INFORMATION
  Report Type: Spontaneous
  Country: US (occurrence: US)
  Receive Date: 20230106
  Receipt Date: 20230106
  Transmission Date: 20230418
  Serious: No
  Sender: FDA-Public Use
  Company Number: US-ALLERGAN-2233483US

PATIENT
  Sex: Female

DRUGS (7)
  1. QULIPTA [Suspect]
     Active Substance: ATOGEPANT
     Indication: Migraine
     Dosage: 30 UNITS, QD
     Route: 048
  2. UBRELVY [Concomitant]
     Active Substance: UBROGEPANT
  3. ATORVASTATIN [Concomitant]
     Active Substance: ATORVASTATIN
  4. OMEPRAZOLE [Concomitant]
     Active Substance: OMEPRAZOLE
  5. LEVOTHYROXINE [Concomitant]
     Active Substance: LEVOTHYROXINE
  6. GLUCOSAMINE [Concomitant]
     Active Substance: GLUCOSAMINE
  7. ASPIRIN\CAFFEINE [Concomitant]
     Active Substance: ASPIRIN\CAFFEINE

REACTIONS (2)
  - Therapy interrupted [Unknown]
  - Migraine [Unknown]
